FAERS Safety Report 4467788-5 (Version None)
Quarter: 2004Q4

REPORT INFORMATION
  Report Type: 
  Country: None (occurrence: None)
  Receive Date: 20041004
  Receipt Date: 20041004
  Transmission Date: 20050328
  Serious: Yes (Other)
  Sender: FDA-Public Use
  Company Number: None

PATIENT
  Sex: Female

DRUGS (3)
  1. AMEVIVE [Suspect]
     Indication: PSORIASIS
     Dosage: 15 MG Q WEEK INTRAMUSCU
     Route: 030
     Dates: start: 20040319, end: 20040510
  2. TOPICAL TRIAMCINOLONE CREAM [Concomitant]
  3. MAXZIDE [Concomitant]

REACTIONS (1)
  - EOSINOPHILIA [None]
